FAERS Safety Report 4515269-2 (Version None)
Quarter: 2004Q4

REPORT INFORMATION
  Report Type: 
  Country: None (occurrence: None)
  Receive Date: 20041126
  Receipt Date: 20041109
  Transmission Date: 20050328
  Serious: Yes (Hospitalization)
  Sender: FDA-Public Use
  Company Number: 2004094376

PATIENT
  Age: 65 Year
  Sex: Female

DRUGS (7)
  1. IRINOTECAN HCL [Suspect]
     Indication: COLON CANCER
     Dosage: (180 MG/M2, CYCLIC), INTRAVENOUS
     Route: 042
     Dates: start: 20020612, end: 20020612
  2. CALCIUM FOLINATE (CALCIUM FOLINATE) [Suspect]
     Indication: COLON CANCER
     Dosage: 200 MG/M2, CYCLIC, INTRAVENOUS
     Route: 042
     Dates: start: 20020612, end: 20020612
  3. FLUOROURACIL [Suspect]
     Indication: COLON CANCER
     Dosage: 800 MG/M2, CYCLIC, INTRAVENOUS; 1200 MG/M2, CYCLIC, INTRAVENOUS
     Route: 042
     Dates: start: 20020612, end: 20020612
  4. FLUOROURACIL [Suspect]
     Indication: COLON CANCER
     Dosage: 800 MG/M2, CYCLIC, INTRAVENOUS; 1200 MG/M2, CYCLIC, INTRAVENOUS
     Route: 042
     Dates: start: 20020612, end: 20020612
  5. PERINDOPRIL ERBUMINE (PERINDOPRIL ERBUMINE) [Concomitant]
  6. OMEPRAZOLE [Concomitant]
  7. HEPARIN-FRACTION, SODIUM SALT (HEPARIN-FRACTION, SODIUM SALT) [Concomitant]

REACTIONS (1)
  - HYDRONEPHROSIS [None]
